FAERS Safety Report 4997781-5 (Version None)
Quarter: 2006Q2

REPORT INFORMATION
  Report Type: 
  Country: None (occurrence: None)
  Receive Date: 20060510
  Receipt Date: 20060426
  Transmission Date: 20061013
  Serious: Yes (Other)
  Sender: FDA-Public Use
  Company Number: US-AMGEN-STX177598

PATIENT
  Sex: Female

DRUGS (5)
  1. ENBREL [Suspect]
     Indication: PSORIATIC ARTHROPATHY
     Dates: start: 20051028, end: 20060427
  2. ENBREL [Suspect]
     Indication: PSORIASIS
  3. SORIATANE [Suspect]
     Route: 048
     Dates: start: 20050823, end: 20060324
  4. ZOLOFT [Concomitant]
     Dates: start: 19950101
  5. CHRONDROITAN + GLUCOSAMINE [Concomitant]
     Dates: start: 20030101

REACTIONS (2)
  - ALANINE AMINOTRANSFERASE INCREASED [None]
  - ASPARTATE AMINOTRANSFERASE INCREASED [None]
